FAERS Safety Report 10195528 (Version 1)
Quarter: 2014Q2

REPORT INFORMATION
  Report Type: Spontaneous
  Country: PH (occurrence: PH)
  Receive Date: 20140527
  Receipt Date: 20140527
  Transmission Date: 20141212
  Serious: Yes (Hospitalization)
  Sender: FDA-Public Use
  Company Number: PH-009507513-1405PHL011905

PATIENT
  Age: 96 Year
  Sex: Male

DRUGS (1)
  1. JANUMET [Suspect]
     Dosage: 1 DF, QD
     Route: 048
     Dates: start: 2013

REACTIONS (2)
  - Pneumonia [Unknown]
  - Inappropriate schedule of drug administration [Unknown]
